FAERS Safety Report 10143420 (Version 4)
Quarter: 2015Q1

REPORT INFORMATION
  Report Type: Spontaneous
  Country: IE (occurrence: IE)
  Receive Date: 20140430
  Receipt Date: 20150326
  Transmission Date: 20150720
  Serious: Yes (Death, Other)
  Sender: FDA-Public Use
  Company Number: IE-JNJFOC-20140419558

PATIENT
  Age: 74 Year
  Sex: Female

DRUGS (4)
  1. FOLIC ACID. [Concomitant]
     Active Substance: FOLIC ACID
     Route: 065
  2. METHOTREXATE [Concomitant]
     Active Substance: METHOTREXATE
     Route: 065
  3. SIMPONI [Suspect]
     Active Substance: GOLIMUMAB
     Indication: RHEUMATOID ARTHRITIS
     Route: 058
  4. SIMPONI [Suspect]
     Active Substance: GOLIMUMAB
     Indication: RHEUMATOID ARTHRITIS
     Dosage: APPROXIMATE TOTAL NUMBER OF INJECTIONS RECEIVED 24
     Route: 058
     Dates: start: 20120321

REACTIONS (2)
  - Death [Fatal]
  - Non-small cell lung cancer [Unknown]

NARRATIVE: CASE EVENT DATE: 20130405
